APPROVED DRUG PRODUCT: URECHOLINE
Active Ingredient: BETHANECHOL CHLORIDE
Strength: 25MG
Dosage Form/Route: TABLET;ORAL
Application: A088441 | Product #001
Applicant: ODYSSEY PHARMACEUTICALS INC
Approved: May 29, 1984 | RLD: Yes | RS: No | Type: DISCN